FAERS Safety Report 26142322 (Version 1)
Quarter: 2025Q4

REPORT INFORMATION
  Report Type: Spontaneous
  Country: EG (occurrence: EG)
  Receive Date: 20251210
  Receipt Date: 20251210
  Transmission Date: 20260118
  Serious: Yes (Hospitalization)
  Sender: HIKMA
  Company Number: EG-HIKMA PHARMACEUTICALS-EG-H14001-25-12788

PATIENT
  Age: 51 Year
  Sex: Female
  Weight: 60 kg

DRUGS (12)
  1. CARBOPLATIN [Suspect]
     Active Substance: CARBOPLATIN
     Indication: Breast cancer
     Dosage: 150 MILLIGRAM, WEEKLY
     Route: 041
     Dates: start: 20250916, end: 20251007
  2. CARBOPLATIN [Suspect]
     Active Substance: CARBOPLATIN
     Indication: Ovarian cancer
     Dosage: 150 MILLIGRAM, WEEKLY
     Route: 041
  3. CARBOPLATIN [Suspect]
     Active Substance: CARBOPLATIN
     Dosage: 150 MILLIGRAM, WEEKLY (CYCLE 3, WEEK 2)
     Route: 041
     Dates: start: 20251014
  4. CARBOPLATIN [Suspect]
     Active Substance: CARBOPLATIN
     Dosage: 150 MILLIGRAM, WEEKLY (CYCLE 3, WEEK 3)
     Route: 041
     Dates: start: 20251021
  5. MVASI [Suspect]
     Active Substance: BEVACIZUMAB-AWWB
     Indication: Breast cancer
     Dosage: 450 MILLIGRAM
     Route: 041
     Dates: start: 20250916, end: 20251007
  6. MVASI [Suspect]
     Active Substance: BEVACIZUMAB-AWWB
     Indication: Ovarian cancer
     Dosage: 450 MILLIGRAM
     Route: 041
  7. MVASI [Suspect]
     Active Substance: BEVACIZUMAB-AWWB
     Dosage: 450 MILLIGRAM, (CYCLE 3, WEEK 2)
     Route: 041
     Dates: start: 20251014
  8. MVASI [Suspect]
     Active Substance: BEVACIZUMAB-AWWB
     Dosage: 450 MILLIGRAM, (CYCLE 3, WEEK 3)
     Route: 041
     Dates: start: 20251021
  9. PACLITAXEL [Suspect]
     Active Substance: PACLITAXEL
     Indication: Breast cancer
     Dosage: 120 MILLIGRAM, WEEKLY
     Route: 041
     Dates: start: 20250916, end: 20251007
  10. PACLITAXEL [Suspect]
     Active Substance: PACLITAXEL
     Indication: Ovarian cancer
     Dosage: 120 MILLIGRAM, WEEKLY
     Route: 041
  11. PACLITAXEL [Suspect]
     Active Substance: PACLITAXEL
     Dosage: 120 MILLIGRAM, WEEKLY (CYCLE 3, WEEK 2)
     Route: 041
     Dates: start: 20251014
  12. PACLITAXEL [Suspect]
     Active Substance: PACLITAXEL
     Dosage: 120 MILLIGRAM, WEEKLY (CYCLE 3, WEEK 3)
     Route: 041
     Dates: start: 20251021

REACTIONS (2)
  - Anal fistula [Recovered/Resolved]
  - Purulent discharge [Recovered/Resolved]

NARRATIVE: CASE EVENT DATE: 20251014
